FAERS Safety Report 10916008 (Version 9)
Quarter: 2016Q3

REPORT INFORMATION
  Report Type: Spontaneous
  Country: FI (occurrence: FI)
  Receive Date: 20150316
  Receipt Date: 20160930
  Transmission Date: 20161109
  Serious: Yes (Other)
  Sender: FDA-Public Use
  Company Number: FI-SA-2013SA123496

PATIENT
  Age: 34 Year
  Sex: Female

DRUGS (18)
  1. ALPHAGAN P [Concomitant]
     Active Substance: BRIMONIDINE TARTRATE
     Dosage: 1 DROP TWICE A DAY TO THE LEFT EYE.
     Route: 047
  2. CHAMPIX [Concomitant]
     Active Substance: VARENICLINE TARTRATE
     Indication: TOBACCO USER
     Dates: start: 201512
  3. TAFLOTAN [Concomitant]
     Active Substance: TAFLUPROST
     Indication: GLAUCOMA
     Dosage: 1 DROP TWICE A DAY TO BOTH EYES
     Route: 047
  4. LEMTRADA [Suspect]
     Active Substance: ALEMTUZUMAB
     Indication: MULTIPLE SCLEROSIS
     Route: 042
     Dates: start: 20131125
  5. CORTISONE [Suspect]
     Active Substance: CORTISONE\HYDROCORTISONE
     Route: 065
  6. SOMAC [Concomitant]
     Active Substance: PANTOPRAZOLE SODIUM
     Indication: PREMEDICATION
     Dates: start: 20131125, end: 20131128
  7. RIVATRIL [Concomitant]
     Active Substance: CLONAZEPAM
     Indication: MULTIPLE SCLEROSIS
     Route: 048
  8. AERIUS [Concomitant]
     Active Substance: DESLORATADINE
     Indication: PREMEDICATION
     Dates: start: 20131125, end: 20131128
  9. LEMTRADA [Suspect]
     Active Substance: ALEMTUZUMAB
     Indication: MULTIPLE SCLEROSIS
     Dosage: STARTED BETWEEN NOV AND DEC-2014
     Route: 042
     Dates: start: 20141202, end: 20141204
  10. SOLU-MEDROL [Concomitant]
     Active Substance: METHYLPREDNISOLONE SODIUM SUCCINATE
     Indication: PREMEDICATION
     Dates: start: 20131125, end: 20131127
  11. GILENYA [Concomitant]
     Active Substance: FINGOLIMOD HYDROCHLORIDE
     Dates: end: 2013
  12. ACICLOVIR [Concomitant]
     Active Substance: ACYCLOVIR
     Indication: PREMEDICATION
     Dates: start: 20131125, end: 20131128
  13. COSOPT [Concomitant]
     Active Substance: DORZOLAMIDE HYDROCHLORIDE\TIMOLOL MALEATE
     Indication: GLAUCOMA
     Dosage: EYE DROPS 1 DROP TO BOTH THE EYES TWICE DAILY
     Route: 047
     Dates: end: 20131128
  14. COTRIM FORTE-RATIOPHARM [Suspect]
     Active Substance: SULFAMETHOXAZOLE\TRIMETHOPRIM
     Indication: PRODUCT USED FOR UNKNOWN INDICATION
  15. ACICLOVIR [Concomitant]
     Active Substance: ACYCLOVIR
     Indication: PREMEDICATION
     Dates: start: 201512
  16. PRED FORTE [Concomitant]
     Active Substance: PREDNISOLONE ACETATE
     Dosage: 6 DROPS A DAY TO BOTH EYES
     Route: 047
  17. PARA-TABS [Concomitant]
     Active Substance: ACETAMINOPHEN
     Indication: PREMEDICATION
     Dosage: 500 MG X 4 TABLETS DAILY
     Dates: start: 20131125, end: 20131128
  18. ODEMIN [Concomitant]
     Indication: GLAUCOMA
     Dosage: 1 TABLET
     Route: 048

REACTIONS (25)
  - Macular oedema [Unknown]
  - Muscle twitching [Unknown]
  - C-reactive protein [Unknown]
  - Fungal infection [Unknown]
  - Pneumonia pneumococcal [Recovering/Resolving]
  - C-reactive protein increased [Unknown]
  - Restlessness [Unknown]
  - Basedow^s disease [Unknown]
  - Insomnia [Unknown]
  - Platelet count decreased [Recovered/Resolved]
  - Fatigue [Not Recovered/Not Resolved]
  - Oral herpes [Unknown]
  - Neurological symptom [Unknown]
  - Blindness unilateral [Recovered/Resolved]
  - Myalgia [Recovered/Resolved]
  - Pain [Unknown]
  - Muscular weakness [Unknown]
  - Rash generalised [Recovering/Resolving]
  - Urinary tract infection [Recovered/Resolved]
  - Headache [Recovered/Resolved]
  - Condition aggravated [Unknown]
  - Vitreous haemorrhage [Not Recovered/Not Resolved]
  - Feeling hot [Unknown]
  - Bradycardia [Unknown]
  - Hyperhidrosis [Unknown]

NARRATIVE: CASE EVENT DATE: 20131125
